FAERS Safety Report 5588561-0 (Version None)
Quarter: 2008Q1

REPORT INFORMATION
  Report Type: 
  Country: None (occurrence: None)
  Receive Date: 20080111
  Receipt Date: 20070305
  Transmission Date: 20080703
  Serious: No
  Sender: FDA-Public Use
  Company Number: US-BRISTOL-MYERS SQUIBB COMPANY-13701214

PATIENT
  Sex: Female

DRUGS (1)
  1. TRAZODONE HCL [Suspect]
     Indication: RESTLESS LEGS SYNDROME

REACTIONS (5)
  - ANXIETY [None]
  - CHEST DISCOMFORT [None]
  - CHEST PAIN [None]
  - DYSPNOEA [None]
  - PALPITATIONS [None]
